FAERS Safety Report 17287778 (Version 3)
Quarter: 2025Q1

REPORT INFORMATION
  Report Type: Spontaneous
  Country: US (occurrence: US)
  Receive Date: 20200120
  Receipt Date: 20250313
  Transmission Date: 20250409
  Serious: No
  Sender: GLAXOSMITHKLINE
  Company Number: US-GSKCCFUS-CASE-00546572_AE-31945

PATIENT
  Age: 63 Year
  Sex: Female

DRUGS (3)
  1. BENLYSTA [Suspect]
     Active Substance: BELIMUMAB
     Indication: Systemic lupus erythematosus
     Dosage: 200 MG, WE
     Route: 058
     Dates: start: 2012, end: 20191212
  2. BENLYSTA [Suspect]
     Active Substance: BELIMUMAB
     Dates: start: 20201001
  3. BENLYSTA [Suspect]
     Active Substance: BELIMUMAB
     Dates: start: 2022

REACTIONS (3)
  - Anxiety [Not Recovered/Not Resolved]
  - Pain [Unknown]
  - Product dose omission issue [Unknown]

NARRATIVE: CASE EVENT DATE: 20240501
